FAERS Safety Report 22103339 (Version 1)
Quarter: 2023Q1

REPORT INFORMATION
  Report Type: Spontaneous
  Country: US (occurrence: None)
  Receive Date: 20230315
  Receipt Date: 20230315
  Transmission Date: 20230418
  Serious: Yes (Death)
  Sender: FDA-Public Use
  Company Number: None

PATIENT
  Age: 75 Year
  Sex: Female
  Weight: 47.3 kg

DRUGS (1)
  1. PROTAMINE [Suspect]
     Active Substance: PROTAMINE
     Indication: Procoagulant therapy
     Dosage: FREQUENCY : ONCE;?
     Route: 042
     Dates: start: 20221129, end: 20221129

REACTIONS (9)
  - Anaphylactic shock [None]
  - Cardiac arrest [None]
  - Cardiomyopathy [None]
  - Right atrial enlargement [None]
  - Pulseless electrical activity [None]
  - Arrhythmia [None]
  - Ejection fraction decreased [None]
  - Heart rate decreased [None]
  - Right ventricular enlargement [None]

NARRATIVE: CASE EVENT DATE: 20221129
